FAERS Safety Report 4765199-6 (Version None)
Quarter: 2005Q3

REPORT INFORMATION
  Report Type: 
  Country: None (occurrence: None)
  Receive Date: 20050906
  Receipt Date: 20050829
  Transmission Date: 20060218
  Serious: Yes (Other)
  Sender: FDA-Public Use
  Company Number: 2005008566

PATIENT
  Sex: Male

DRUGS (2)
  1. CELEBREX [Suspect]
     Indication: ARTHRITIS
  2. VIOXX [Suspect]
     Indication: ILL-DEFINED DISORDER

REACTIONS (3)
  - ARTERIAL THERAPEUTIC PROCEDURE [None]
  - PAIN [None]
  - UNEVALUABLE EVENT [None]
